FAERS Safety Report 17316863 (Version 5)
Quarter: 2020Q1

REPORT INFORMATION
  Report Type: Spontaneous
  Country: CH (occurrence: CH)
  Receive Date: 20200124
  Receipt Date: 20200213
  Transmission Date: 20200409
  Serious: Yes (Hospitalization, Other)
  Sender: FDA-Public Use
  Company Number: CH-PFIZER INC-2020035614

PATIENT
  Age: 81 Year
  Sex: Female
  Weight: 62 kg

DRUGS (27)
  1. FRAGMIN [Suspect]
     Active Substance: DALTEPARIN SODIUM
     Dosage: UNK
     Route: 065
     Dates: start: 20191118, end: 20191122
  2. MABTHERA [Concomitant]
     Active Substance: RITUXIMAB
     Dosage: 653 MG, UNK
     Route: 041
     Dates: start: 20191119, end: 20191119
  3. LASIX [Interacting]
     Active Substance: FUROSEMIDE
     Dosage: 20 MG, UNK
     Route: 065
     Dates: start: 20191127, end: 20191128
  4. TRIATEC [LOSARTAN POTASSIUM] [Concomitant]
     Active Substance: LOSARTAN POTASSIUM
     Dosage: 140 MG, UNK
     Dates: start: 20191208
  5. XYZAL [Concomitant]
     Active Substance: LEVOCETIRIZINE DIHYDROCHLORIDE
     Dosage: 5 MILLIGRAM
  6. LASIX [Interacting]
     Active Substance: FUROSEMIDE
     Dosage: 80 MILLIGRAM
     Route: 065
     Dates: start: 20191202
  7. LASIX [Interacting]
     Active Substance: FUROSEMIDE
     Dosage: 20 MILLIGRAM
     Route: 065
     Dates: start: 20191205, end: 20191207
  8. TRIATEC [LOSARTAN POTASSIUM] [Concomitant]
     Active Substance: LOSARTAN POTASSIUM
     Dosage: 5 MILLIGRAM, BID
     Dates: start: 20191115, end: 20191129
  9. PALONOSETRON. [Concomitant]
     Active Substance: PALONOSETRON HYDROCHLORIDE
     Dosage: UNK
  10. LIXIANA [Suspect]
     Active Substance: EDOXABAN TOSYLATE
     Dosage: UNK
     Route: 065
     Dates: start: 20191123, end: 20191129
  11. NATULAN [Suspect]
     Active Substance: PROCARBAZINE HYDROCHLORIDE
     Dosage: 100 MG, UNK
     Route: 048
     Dates: start: 20191128, end: 20191130
  12. CYMBALTA [Concomitant]
     Active Substance: DULOXETINE HYDROCHLORIDE
     Dosage: 30 MILLIGRAM, QD
     Dates: start: 20191130, end: 20191207
  13. HEPARIN [Suspect]
     Active Substance: HEPARIN SODIUM
     Dosage: UNK
     Route: 065
     Dates: start: 20191124, end: 20191129
  14. ATORVASTATIN PFIZER [Concomitant]
     Active Substance: ATORVASTATIN
     Dosage: 20 MILLIGRAM, QD
  15. AMLODIPINE [Concomitant]
     Active Substance: AMLODIPINE BESYLATE
     Dosage: 5 MILLIGRAM, QD
     Dates: start: 20191122
  16. DIFLUCAN [Concomitant]
     Active Substance: FLUCONAZOLE
     Dosage: 200 MILLIGRAM, 1/WEEK
     Dates: start: 20191119
  17. DAFALGAN [Concomitant]
     Active Substance: ACETAMINOPHEN
     Dosage: 1000 MG, UNK
  18. LASIX [Interacting]
     Active Substance: FUROSEMIDE
     Dosage: 40 MILLIGRAM
     Route: 065
     Dates: start: 20191203, end: 20191204
  19. MABTHERA [Concomitant]
     Active Substance: RITUXIMAB
     Dosage: 653 MG, UNK
     Route: 041
     Dates: start: 20191126, end: 20191126
  20. SODIUM BICARBONATE. [Concomitant]
     Active Substance: SODIUM BICARBONATE
     Dosage: UNK
  21. PANTOZOL [Suspect]
     Active Substance: PANTOPRAZOLE SODIUM
     Dosage: 40 MG, 2X/DAY
     Route: 065
     Dates: start: 20191106
  22. METHOTREXAT SANDOZ [METHOTREXATE] [Suspect]
     Active Substance: METHOTREXATE
     Dosage: 5225 MILLIGRAM
     Route: 041
     Dates: start: 20191127, end: 20191127
  23. CYMBALTA [Concomitant]
     Active Substance: DULOXETINE HYDROCHLORIDE
     Dosage: UNK
     Dates: start: 20191208
  24. HEPARIN CALCIUM [Concomitant]
     Active Substance: HEPARIN CALCIUM
     Dosage: UNK
     Dates: start: 20191124, end: 20191129
  25. FORTECORTIN [DEXAMETHASONE] [Concomitant]
     Active Substance: DEXAMETHASONE
     Dosage: 12 MILLIGRAM, QD
     Dates: start: 20191109
  26. NOPIL [Concomitant]
     Active Substance: SULFAMETHOXAZOLE\TRIMETHOPRIM
     Dosage: UNK
     Dates: start: 20191120
  27. POLYETHYLENE [Concomitant]
     Active Substance: HIGH DENSITY POLYETHYLENE
     Dosage: UNK

REACTIONS (3)
  - Acute kidney injury [Recovering/Resolving]
  - Contraindicated product administered [Recovering/Resolving]
  - Drug interaction [Recovering/Resolving]

NARRATIVE: CASE EVENT DATE: 20191127
